FAERS Safety Report 9375032 (Version 5)
Quarter: 2014Q1

REPORT INFORMATION
  Report Type: Spontaneous
  Country: US (occurrence: US)
  Receive Date: 20130628
  Receipt Date: 20140122
  Transmission Date: 20141002
  Serious: Yes (Hospitalization, Disabling, Other)
  Sender: FDA-Public Use
  Company Number: US-009507513-1205USA04417

PATIENT
  Sex: Female
  Weight: 71.2 kg

DRUGS (10)
  1. FOSAMAX [Suspect]
     Indication: OSTEOPOROSIS
     Dosage: 70 MG, UNK
     Route: 048
     Dates: start: 200309, end: 200612
  2. BONIVA [Suspect]
     Indication: OSTEOPOROSIS
     Dosage: 150 MG, UNK
     Dates: start: 200701, end: 200807
  3. ACTONEL [Suspect]
     Indication: OSTEOPOROSIS
     Dosage: UNK
     Dates: start: 200210, end: 200309
  4. ALENDRONATE SODIUM [Suspect]
     Indication: OSTEOPOROSIS
     Dosage: 70 MG, QW
     Route: 048
     Dates: start: 200808, end: 201005
  5. VITAMIN E [Concomitant]
     Dosage: 400 IU, QD
     Dates: start: 2006
  6. FLAXSEED [Concomitant]
     Dosage: 1000 MG, QD
     Dates: start: 2006
  7. PYRIDOXINE [Concomitant]
     Dosage: 100 MG, QD
     Dates: start: 2006
  8. CALCIUM (UNSPECIFIED) [Concomitant]
     Dosage: 400 MG, BID
     Dates: start: 1983
  9. VITAMIN D (UNSPECIFIED) [Concomitant]
     Dosage: 500 IU,QD
     Dates: start: 1983
  10. METOPROLOL [Concomitant]
     Indication: PREMEDICATION
     Dosage: UNK
     Dates: start: 20121109

REACTIONS (41)
  - Vision blurred [Recovered/Resolved]
  - Fall [Unknown]
  - Contusion [Unknown]
  - Contusion [Unknown]
  - Tendon sheath lesion excision [Unknown]
  - Fracture nonunion [Unknown]
  - Craniocerebral injury [Recovered/Resolved]
  - Throat irritation [Unknown]
  - Vulvovaginal pruritus [Unknown]
  - Vulvovaginal burning sensation [Unknown]
  - Vaginal erosion [Unknown]
  - Candida infection [Unknown]
  - Headache [Recovering/Resolving]
  - Arthralgia [Unknown]
  - Joint swelling [Unknown]
  - Drug hypersensitivity [Unknown]
  - Drug ineffective [Unknown]
  - Constipation [Unknown]
  - Femur fracture [Unknown]
  - Low turnover osteopathy [Not Recovered/Not Resolved]
  - Anxiety [Not Recovered/Not Resolved]
  - Femur fracture [Unknown]
  - Intramedullary rod insertion [Unknown]
  - Open reduction of fracture [Unknown]
  - Hyperglycaemia [Recovered/Resolved]
  - Anaemia [Recovered/Resolved]
  - Osteoarthritis [Unknown]
  - Limb operation [Unknown]
  - Tonsillectomy [Unknown]
  - Adenoidectomy [Unknown]
  - Cardiomegaly [Unknown]
  - Ventricular extrasystoles [Unknown]
  - Left ventricular hypertrophy [Unknown]
  - Fall [Unknown]
  - Fall [Unknown]
  - Osteopenia [Unknown]
  - Scoliosis [Unknown]
  - Spinal osteoarthritis [Unknown]
  - Vulval disorder [Unknown]
  - Road traffic accident [Unknown]
  - Eye contusion [Recovering/Resolving]
